FAERS Safety Report 15556895 (Version 2)
Quarter: 2018Q4

REPORT INFORMATION
  Report Type: Spontaneous
  Country: JP (occurrence: JP)
  Receive Date: 20181026
  Receipt Date: 20181121
  Transmission Date: 20190205
  Serious: Yes (Death, Life-Threatening, Hospitalization, Other)
  Sender: FDA-Public Use
  Company Number: JP-SHIRE-JP201840278AA

PATIENT
  Age: 90 Year
  Sex: Female

DRUGS (8)
  1. AGRYLIN [Suspect]
     Active Substance: ANAGRELIDE HYDROCHLORIDE
     Dosage: 2 MG/DAY
     Route: 048
     Dates: start: 20180809, end: 20181010
  2. AGRYLIN [Suspect]
     Active Substance: ANAGRELIDE HYDROCHLORIDE
     Dosage: 0.5 MG/DAY
     Route: 048
     Dates: start: 20180720, end: 20180725
  3. HYDREA [Suspect]
     Active Substance: HYDROXYUREA
     Indication: ESSENTIAL THROMBOCYTHAEMIA
     Dosage: 500 MG/DAY
     Route: 048
     Dates: start: 20180720, end: 20180808
  4. HYDREA [Suspect]
     Active Substance: HYDROXYUREA
     Dosage: 500 MG/DAY
     Route: 048
     Dates: start: 20181015, end: 20181018
  5. AGRYLIN [Suspect]
     Active Substance: ANAGRELIDE HYDROCHLORIDE
     Indication: ESSENTIAL THROMBOCYTHAEMIA
     Dosage: 1.5 MG/DAY
     Route: 048
     Dates: start: 20181011, end: 20181015
  6. AGRYLIN [Suspect]
     Active Substance: ANAGRELIDE HYDROCHLORIDE
     Dosage: 1.0 MG/DAY
     Route: 048
     Dates: start: 20180726, end: 20180801
  7. HYDREA [Suspect]
     Active Substance: HYDROXYUREA
     Dosage: 500 MG/DAY
     Route: 048
     Dates: start: 20180828, end: 20181002
  8. AGRYLIN [Suspect]
     Active Substance: ANAGRELIDE HYDROCHLORIDE
     Dosage: 1.5 MG/DAY
     Route: 048
     Dates: start: 20180802, end: 20180808

REACTIONS (3)
  - Blood creatine phosphokinase increased [Not Recovered/Not Resolved]
  - Cardiac failure [Fatal]
  - Renal failure [Not Recovered/Not Resolved]

NARRATIVE: CASE EVENT DATE: 20181015
